FAERS Safety Report 12552245 (Version 1)
Quarter: 2016Q3

REPORT INFORMATION
  Report Type: Spontaneous
  Country: US (occurrence: None)
  Receive Date: 20160712
  Receipt Date: 20160712
  Transmission Date: 20161109
  Serious: No
  Sender: FDA-Public Use
  Company Number: None

PATIENT
  Age: 70 Year
  Sex: Female
  Weight: 86.18 kg

DRUGS (9)
  1. MOBIC/MELOXICAM [Concomitant]
  2. MULTI-VITAMIN [Concomitant]
     Active Substance: .ALPHA.-TOCOPHEROL ACETATE, DL-\ASCORBIC ACID\CYANOCOBALAMIN\FLUORIDE ION\FOLIC ACID\NIACIN\PYRIDOXINE\RIBOFLAVIN\THIAMINE\VITAMIN A\VITAMIN D
  3. CALCIUM [Concomitant]
     Active Substance: CALCIUM
  4. ASPIRIN. [Concomitant]
     Active Substance: ASPIRIN
  5. ESTRACE (ESTRADIOL) [Concomitant]
  6. ACETAMINAPHEN [Concomitant]
  7. LEVOTHYROXINE. [Concomitant]
     Active Substance: LEVOTHYROXINE
  8. OMEPRAZOLE. [Concomitant]
     Active Substance: OMEPRAZOLE
  9. MONUROI (FOSFOMYCIN TROMETHAMINE) [Suspect]
     Active Substance: FOSFOMYCIN TROMETHAMINE
     Indication: URINARY TRACT INFECTION
     Dosage: 2 PACKETS, 1 PACKET DAY 1, 1 PACKET DAY 3, POWDER MIXED WITH WATER
     Dates: start: 20160621

REACTIONS (5)
  - Diarrhoea [None]
  - Vulvovaginal discomfort [None]
  - Headache [None]
  - Haemorrhage [None]
  - Fatigue [None]

NARRATIVE: CASE EVENT DATE: 20160621
